FAERS Safety Report 7720686-3 (Version None)
Quarter: 2011Q3

REPORT INFORMATION
  Report Type: 
  Country: None (occurrence: None)
  Receive Date: 20110831
  Receipt Date: 20110825
  Transmission Date: 20111222
  Serious: Yes (Death)
  Sender: FDA-Public Use
  Company Number: PHHY2011BR46902

PATIENT
  Sex: Female

DRUGS (5)
  1. PANTOPRAZOLE [Concomitant]
     Indication: GASTROINTESTINAL DISORDER
     Dosage: 1 DF, DAILY (40 MG)
  2. SOTALOL HYDROCHLORIDE [Concomitant]
  3. DIOVAN [Suspect]
     Indication: HYPERTENSION
     Dosage: 2 DF, DAILY (160 MG)
  4. MANIDIPINE HYDROCHLORIDE [Concomitant]
     Dosage: 2 DF, DAILY (10 MG)
  5. BETAXOLOL HYDROCHLORIDE [Concomitant]

REACTIONS (4)
  - CARDIAC ARREST [None]
  - GAIT DISTURBANCE [None]
  - DEPRESSION [None]
  - ORGAN FAILURE [None]
